FAERS Safety Report 7325774-1 (Version None)
Quarter: 2011Q1

REPORT INFORMATION
  Report Type: 
  Country: None (occurrence: None)
  Receive Date: 20110302
  Receipt Date: 20110221
  Transmission Date: 20110831
  Serious: Yes (Other)
  Sender: FDA-Public Use
  Company Number: DE-TEVA-268443GER

PATIENT
  Age: 12 Year
  Sex: Female

DRUGS (6)
  1. IBUPROFEN [Suspect]
  2. PREDNISOLONE [Suspect]
  3. PREDNISOLONE [Suspect]
  4. PREDNISOLONE [Suspect]
  5. DEXAMETHASONE [Suspect]
  6. DEXAMETHASONE [Suspect]

REACTIONS (5)
  - HISTIOCYTOSIS HAEMATOPHAGIC [None]
  - WEIGHT INCREASED [None]
  - LYMPHOHISTIOCYTOSIS [None]
  - JUVENILE ARTHRITIS [None]
  - INCREASED APPETITE [None]
